FAERS Safety Report 12276702 (Version 1)
Quarter: 2016Q2

REPORT INFORMATION
  Report Type: Spontaneous
  Country: US (occurrence: None)
  Receive Date: 20160415
  Receipt Date: 20160415
  Transmission Date: 20160815
  Serious: Yes (Life-Threatening, Hospitalization, Disabling, Other)
  Sender: FDA-Public Use
  Company Number: None

PATIENT
  Age: 33 Year
  Sex: Male
  Weight: 81.65 kg

DRUGS (8)
  1. VITAMIN D [Concomitant]
     Active Substance: CHOLECALCIFEROL
  2. CIPROFLOXACIN 500MG TABLET, 500 MG WEST-WARD PHARCEUTICALS [Suspect]
     Active Substance: CIPROFLOXACIN
     Indication: PROSTATITIS
     Route: 048
     Dates: start: 20150529, end: 20150602
  3. CYCLOBENZAPRINE [Concomitant]
     Active Substance: CYCLOBENZAPRINE
  4. TURMERIC [Concomitant]
     Active Substance: TURMERIC
  5. GLUTATHIONE [Concomitant]
     Active Substance: GLUTATHIONE
  6. GABAPENTIN. [Concomitant]
     Active Substance: GABAPENTIN
  7. CALCIUM [Concomitant]
     Active Substance: CALCIUM
  8. MAGNESIUM [Concomitant]
     Active Substance: MAGNESIUM

REACTIONS (13)
  - Feeling abnormal [None]
  - Meniscus injury [None]
  - Cyst [None]
  - Quality of life decreased [None]
  - Toxicity to various agents [None]
  - Tinnitus [None]
  - Intervertebral disc protrusion [None]
  - Burning sensation [None]
  - Eye pain [None]
  - Muscle twitching [None]
  - Urticaria [None]
  - Muscle spasms [None]
  - Neuropathy peripheral [None]

NARRATIVE: CASE EVENT DATE: 20150602
